FAERS Safety Report 12895946 (Version 1)
Quarter: 2016Q4

REPORT INFORMATION
  Report Type: Spontaneous
  Country: US (occurrence: US)
  Receive Date: 20161031
  Receipt Date: 20161031
  Transmission Date: 20170207
  Serious: No
  Sender: FDA-Public Use
  Company Number: US-JNJFOC-20160905269

PATIENT
  Age: 66 Year
  Sex: Female
  Weight: 59 kg

DRUGS (5)
  1. NESINA [Concomitant]
     Active Substance: ALOGLIPTIN BENZOATE
     Indication: TYPE 2 DIABETES MELLITUS
     Route: 048
  2. CLARITIN [Concomitant]
     Active Substance: LORATADINE
     Dosage: BEFORE ADMINISTRATION OF CANAGLIFLOZIN
     Route: 048
  3. CANAGLU [Suspect]
     Active Substance: CANAGLIFLOZIN
     Indication: TYPE 2 DIABETES MELLITUS
     Route: 048
     Dates: start: 20151216
  4. OLMETEC [Concomitant]
     Active Substance: OLMESARTAN MEDOXOMIL
     Dosage: BEFORE ADMINISTRATION OF CANAGLIFLOZIN
     Route: 048
  5. AMARYL [Concomitant]
     Active Substance: GLIMEPIRIDE
     Indication: TYPE 2 DIABETES MELLITUS
     Route: 048

REACTIONS (1)
  - Ligament sprain [Recovered/Resolved]

NARRATIVE: CASE EVENT DATE: 201601
